FAERS Safety Report 8413372-8 (Version None)
Quarter: 2012Q2

REPORT INFORMATION
  Report Type: 
  Country: None (occurrence: None)
  Receive Date: 20120605
  Receipt Date: 20120531
  Transmission Date: 20120825
  Serious: Yes (Other)
  Sender: FDA-Public Use
  Company Number: PHHY2012NL047195

PATIENT
  Sex: Female
  Weight: 88 kg

DRUGS (5)
  1. SERTRALINE HYDROCHLORIDE [Suspect]
     Indication: DEPRESSION
     Dosage: 50 MG
     Route: 048
     Dates: start: 20110301
  2. DEPAKENE [Concomitant]
     Dosage: 1000 MG
  3. SERTRALINE HYDROCHLORIDE [Suspect]
     Dosage: 100 MG
     Route: 048
     Dates: end: 20120429
  4. VALPROIC ACID [Concomitant]
     Dosage: UNK
     Dates: start: 20070101
  5. PIPAMPERONE [Concomitant]
     Dosage: 80 MG

REACTIONS (1)
  - BREAST CANCER [None]
